FAERS Safety Report 13683117 (Version 2)
Quarter: 2018Q1

REPORT INFORMATION
  Report Type: Spontaneous
  Country: JP (occurrence: JP)
  Receive Date: 20170623
  Receipt Date: 20180102
  Transmission Date: 20180508
  Serious: Yes (Other)
  Sender: FDA-Public Use
  Company Number: JP-DEPOMED, INC.-JP-2017DEP001273

PATIENT

DRUGS (3)
  1. OXYCODONE [Concomitant]
     Active Substance: OXYCODONE
     Indication: CANCER PAIN
     Dosage: UNK
  2. TRAMADOL. [Concomitant]
     Active Substance: TRAMADOL
     Indication: CANCER PAIN
     Dosage: UNK
  3. TAPENTADOL HYDROCHLORIDE [Suspect]
     Active Substance: TAPENTADOL HYDROCHLORIDE
     Indication: CANCER PAIN
     Dosage: UNK
     Route: 048

REACTIONS (2)
  - Delirium [Recovering/Resolving]
  - Abdominal pain [Recovering/Resolving]
